FAERS Safety Report 4826145-X (Version None)
Quarter: 2005Q4

REPORT INFORMATION
  Report Type: 
  Country: None (occurrence: None)
  Receive Date: 20051109
  Receipt Date: 20051028
  Transmission Date: 20060501
  Serious: Yes (Other)
  Sender: FDA-Public Use
  Company Number: 2005150088

PATIENT
  Age: 42 Year
  Sex: Female
  Weight: 47.1741 kg

DRUGS (2)
  1. LIPITOR [Suspect]
     Indication: BLOOD CHOLESTEROL
     Dosage: 30 MG (1 IN 1 D)
     Dates: start: 20040101, end: 20050216
  2. ORAL CONTRACEPTIVE NOS (ORAL CONTRACEPTIVE NOS) [Suspect]
     Indication: ILL-DEFINED DISORDER
     Dates: end: 20050112

REACTIONS (6)
  - BREAST FIBROMA [None]
  - CAESAREAN SECTION [None]
  - DRUG EXPOSURE DURING PREGNANCY [None]
  - ENDOMETRIAL HYPERPLASIA [None]
  - MENSTRUAL DISORDER [None]
  - PREGNANCY [None]
